FAERS Safety Report 8223783-1 (Version None)
Quarter: 2012Q1

REPORT INFORMATION
  Report Type: 
  Country: None (occurrence: None)
  Receive Date: 20120321
  Receipt Date: 20120321
  Transmission Date: 20120608
  Serious: Yes (Other)
  Sender: FDA-Public Use
  Company Number: None

PATIENT
  Sex: Female
  Weight: 99.79 kg

DRUGS (2)
  1. METFORMIN HCL [Concomitant]
     Indication: INSULIN RESISTANCE
     Dosage: 500MG
     Route: 048
     Dates: start: 20000202, end: 20080703
  2. SPIRONOLACTONE AND HYDROCHLOROTHIAZIDE [Suspect]
     Indication: HAIR GROWTH ABNORMAL
     Dosage: 25 MG
     Route: 048
     Dates: start: 20020601, end: 20080703

REACTIONS (6)
  - DEPRESSION [None]
  - PERSONALITY CHANGE [None]
  - CONFUSIONAL STATE [None]
  - MOOD SWINGS [None]
  - SUICIDAL IDEATION [None]
  - PARANOIA [None]
